FAERS Safety Report 7203488-6 (Version None)
Quarter: 2010Q4

REPORT INFORMATION
  Report Type: 
  Country: None (occurrence: None)
  Receive Date: 20101230
  Receipt Date: 20101227
  Transmission Date: 20110411
  Serious: Yes (Life-Threatening, Other)
  Sender: FDA-Public Use
  Company Number: US-PERRIGO-10US013704

PATIENT
  Sex: Male
  Weight: 68.027 kg

DRUGS (4)
  1. POLYETHYLENE GLYCOL 3350 [Suspect]
     Indication: CONSTIPATION
     Dosage: 17 G DAILY PRN
     Route: 048
     Dates: start: 20100730, end: 20100920
  2. LEVEMIR [Concomitant]
     Indication: DIABETES MELLITUS
     Dosage: 15 MG, QD
     Route: 048
     Dates: start: 20100301
  3. METFORMIN [Concomitant]
     Indication: DIABETES MELLITUS
     Dosage: 500 MG, BID
     Route: 048
     Dates: start: 20000101
  4. NATEGLINIDE [Concomitant]
     Indication: DIABETES MELLITUS
     Dosage: 120 MG, QD
     Route: 048
     Dates: end: 20100930

REACTIONS (1)
  - BLOOD POTASSIUM INCREASED [None]
